FAERS Safety Report 4943520-3 (Version None)
Quarter: 2006Q1

REPORT INFORMATION
  Report Type: 
  Country: None (occurrence: None)
  Receive Date: 20060314
  Receipt Date: 20060302
  Transmission Date: 20060701
  Serious: Yes (Hospitalization)
  Sender: FDA-Public Use
  Company Number: US-JNJFOC-20060300938

PATIENT
  Sex: Female

DRUGS (6)
  1. KETOCONAZOLE [Suspect]
     Indication: NEOPLASM
     Route: 048
  2. DASATINIB [Suspect]
     Indication: NEOPLASM
  3. LORTAB [Concomitant]
  4. LORTAB [Concomitant]
  5. OXYCONTIN [Concomitant]
  6. ATIVAN [Concomitant]

REACTIONS (4)
  - ASTHENIA [None]
  - DEHYDRATION [None]
  - HYPOVOLAEMIA [None]
  - MENTAL STATUS CHANGES [None]
